FAERS Safety Report 4994456-3 (Version None)
Quarter: 2006Q1

REPORT INFORMATION
  Report Type: 
  Country: None (occurrence: None)
  Receive Date: 20060313
  Receipt Date: 20051128
  Transmission Date: 20060701
  Serious: No
  Sender: FDA-Public Use
  Company Number: 2005-BP-20698BP

PATIENT
  Age: 62 Year
  Sex: Female

DRUGS (3)
  1. SPIRIVA [Suspect]
     Indication: CHRONIC OBSTRUCTIVE PULMONARY DISEASE
     Dosage: 18 MG (18 MG), IH
     Route: 055
     Dates: start: 20050801
  2. ADVAIR (SERETIDE) [Concomitant]
  3. ALBUTEROL [Concomitant]

REACTIONS (3)
  - CHEILITIS [None]
  - DRY MOUTH [None]
  - DYSPHONIA [None]
